FAERS Safety Report 12137735 (Version 3)
Quarter: 2020Q2

REPORT INFORMATION
  Report Type: Spontaneous
  Country: US (occurrence: US)
  Receive Date: 20160302
  Receipt Date: 20200605
  Transmission Date: 20200713
  Serious: Yes (Death, Hospitalization, Other)
  Sender: FDA-Public Use
  Company Number: US-009507513-1603USA001269

PATIENT
  Sex: Male
  Weight: 88.89 kg

DRUGS (1)
  1. JANUVIA [Suspect]
     Active Substance: SITAGLIPTIN PHOSPHATE
     Indication: TYPE 2 DIABETES MELLITUS
     Dosage: 100 MILLIGRAM, ONCE DAILY
     Route: 048
     Dates: start: 20111129, end: 201212

REACTIONS (14)
  - Central venous catheterisation [Unknown]
  - Anaemia [Unknown]
  - Insomnia [Unknown]
  - Bronchitis [Unknown]
  - Orthostatic hypotension [Unknown]
  - Pancreatic carcinoma metastatic [Fatal]
  - Metastases to breast [Unknown]
  - Neuropathy peripheral [Unknown]
  - Oedema peripheral [Unknown]
  - Hyperlipidaemia [Unknown]
  - Obstructive pancreatitis [Unknown]
  - Bipolar disorder [Unknown]
  - Constipation [Unknown]
  - Thrombocytopenia [Unknown]

NARRATIVE: CASE EVENT DATE: 2013
